FAERS Safety Report 6269863-1 (Version None)
Quarter: 2009Q3

REPORT INFORMATION
  Report Type: 
  Country: None (occurrence: None)
  Receive Date: 20090716
  Receipt Date: 20080311
  Transmission Date: 20100115
  Serious: Yes (Other)
  Sender: FDA-Public Use
  Company Number: US-ASTRAZENECA-2007UW21492

PATIENT
  Age: 43 Year
  Sex: Male

DRUGS (23)
  1. SEROQUEL [Suspect]
     Indication: ANXIETY
     Dosage: 25 - 200 MG
     Route: 048
     Dates: start: 20050101
  2. SEROQUEL [Suspect]
     Indication: DEPRESSION
     Dosage: 25 - 200 MG
     Route: 048
     Dates: start: 20050101
  3. SEROQUEL [Suspect]
     Dosage: 100 MG
     Route: 048
     Dates: start: 20050523
  4. SEROQUEL [Suspect]
     Dosage: 100 MG
     Route: 048
     Dates: start: 20050523
  5. GABAPENTIN [Concomitant]
  6. CRESTOR [Concomitant]
     Dates: start: 20070523
  7. LEXAPRO [Concomitant]
  8. TESTRED [Concomitant]
  9. LIPITOR [Concomitant]
     Dosage: 20-40 MG
     Dates: end: 20060712
  10. TARKA [Concomitant]
     Dosage: 4/240 MG EVERYDAY
  11. AMITRIPTYLINE [Concomitant]
  12. TRAZODONE [Concomitant]
  13. EFFEXOR [Concomitant]
     Dates: start: 20060725
  14. LYRICA [Concomitant]
  15. METFORMIN HCL [Concomitant]
     Dates: start: 20061019, end: 20070918
  16. TRIGLIDE [Concomitant]
  17. HYDROXYZ HCL [Concomitant]
  18. IBUPROFEN [Concomitant]
  19. AMARYL [Concomitant]
     Dosage: 2 MG 1/2 EVERY MORNING
  20. NIZORAL [Concomitant]
  21. PRAVACHOL [Concomitant]
     Dates: end: 20071008
  22. MOBIC [Concomitant]
  23. VYTORIN [Concomitant]
     Dosage: 10/40 DAILY
     Route: 048
     Dates: start: 20060712, end: 20070523

REACTIONS (4)
  - DIABETES MELLITUS [None]
  - DIABETES MELLITUS INADEQUATE CONTROL [None]
  - HYPERTRIGLYCERIDAEMIA [None]
  - NEUROPATHY PERIPHERAL [None]
